FAERS Safety Report 24976855 (Version 2)
Quarter: 2025Q2

REPORT INFORMATION
  Report Type: Spontaneous
  Country: JP (occurrence: JP)
  Receive Date: 20250217
  Receipt Date: 20250429
  Transmission Date: 20250717
  Serious: Yes (Hospitalization)
  Sender: CATALYST PHARMA
  Company Number: JP-CATALYSTPHARMACEUTICALPARTNERS-JP-CATA-25-00204

PATIENT
  Age: 60 Year
  Sex: Female

DRUGS (9)
  1. FYCOMPA [Suspect]
     Active Substance: PERAMPANEL
     Indication: Epilepsy
     Dosage: 6.0 MILLIGRAM(S) (6 MILLIGRAM(S), 1 IN 1 DAY)
     Route: 048
  2. PREDNISOLONE [Concomitant]
     Active Substance: PREDNISOLONE
     Indication: Product used for unknown indication
     Dosage: 3.0 MILLIGRAM(S) (3 MILLIGRAM(S), 1 IN 1 DAY)
     Route: 065
  3. PREDNISOLONE [Concomitant]
     Active Substance: PREDNISOLONE
     Route: 065
     Dates: start: 20230530, end: 2023
  4. PREDNISOLONE [Concomitant]
     Active Substance: PREDNISOLONE
     Route: 065
     Dates: start: 20230822
  5. AZATHIOPRINE [Concomitant]
     Active Substance: AZATHIOPRINE
     Indication: Product used for unknown indication
     Dosage: 50.0 MILLIGRAM(S) (50 MILLIGRAM(S), 1 IN 1 DAY)
     Route: 065
  6. AZATHIOPRINE [Concomitant]
     Active Substance: AZATHIOPRINE
     Route: 065
     Dates: start: 20230822
  7. HYDROXYCHLOROQUINE SULFATE [Concomitant]
     Active Substance: HYDROXYCHLOROQUINE SULFATE
     Indication: Product used for unknown indication
     Dosage: 200.0 MILLIGRAM(S) (200 MILLIGRAM(S), 1 IN 1 DAY)
     Route: 065
  8. VALPROATE SODIUM [Concomitant]
     Active Substance: VALPROATE SODIUM
     Indication: Product used for unknown indication
     Dosage: 500.0 MILLIGRAM(S) (500 MILLIGRAM(S), 1 IN 1 DAY)
     Route: 065
     Dates: end: 20230912
  9. VALPROATE SODIUM [Concomitant]
     Active Substance: VALPROATE SODIUM
     Route: 065
     Dates: start: 20230913

REACTIONS (3)
  - Catatonia [Recovered/Resolved]
  - Insomnia [Unknown]
  - Anhedonia [Unknown]

NARRATIVE: CASE EVENT DATE: 20230903
